FAERS Safety Report 8114105-5 (Version None)
Quarter: 2012Q1

REPORT INFORMATION
  Report Type: 
  Country: None (occurrence: None)
  Receive Date: 20120203
  Receipt Date: 20120125
  Transmission Date: 20120608
  Serious: Yes (Hospitalization)
  Sender: FDA-Public Use
  Company Number: FR-ASTRAZENECA-2011SE71540

PATIENT
  Sex: Male
  Weight: 5 kg

DRUGS (2)
  1. XYLOCAINE [Suspect]
     Route: 050
     Dates: start: 20111028, end: 20111028
  2. XYLOCAINE [Suspect]
     Indication: CIRCUMCISION
     Route: 050
     Dates: start: 20111028, end: 20111028

REACTIONS (3)
  - MEDICATION ERROR [None]
  - CYANOSIS [None]
  - CONVULSION [None]
